FAERS Safety Report 16022556 (Version 1)
Quarter: 2019Q1

REPORT INFORMATION
  Report Type: Spontaneous
  Country: US (occurrence: US)
  Receive Date: 20190301
  Receipt Date: 20190301
  Transmission Date: 20190418
  Serious: No
  Sender: FDA-Public Use
  Company Number: US-BAYER-2019-043013

PATIENT
  Sex: Male
  Weight: 127 kg

DRUGS (2)
  1. CITRACAL [Suspect]
     Active Substance: CALCIUM CITRATE
  2. MIRALAX [Suspect]
     Active Substance: POLYETHYLENE GLYCOL 3350
     Indication: GASTROINTESTINAL DISORDER
     Dosage: 2 DF
     Route: 048
     Dates: start: 2018

REACTIONS (2)
  - Extra dose administered [Unknown]
  - Epistaxis [Unknown]

NARRATIVE: CASE EVENT DATE: 20190224
